FAERS Safety Report 9861240 (Version 1)
Quarter: 2014Q1

REPORT INFORMATION
  Report Type: Spontaneous
  Country: CA (occurrence: CA)
  Receive Date: 20140202
  Receipt Date: 20140202
  Transmission Date: 20141002
  Serious: No
  Sender: FDA-Public Use
  Company Number: CA-ALLERGAN-1304290US

PATIENT
  Age: 30 Year
  Sex: Female

DRUGS (2)
  1. BOTOX [Suspect]
     Indication: HYPERHIDROSIS
     Dosage: 200 UNITS, SINGLE
     Route: 023
     Dates: start: 20130206, end: 20130206
  2. BOTOX [Suspect]
     Dosage: UNK, SINGLE
     Route: 023

REACTIONS (2)
  - Off label use [Unknown]
  - Drug ineffective [Unknown]
